FAERS Safety Report 7659213-8 (Version None)
Quarter: 2011Q3

REPORT INFORMATION
  Report Type: 
  Country: None (occurrence: None)
  Receive Date: 20110805
  Receipt Date: 20110804
  Transmission Date: 20111222
  Serious: Yes (Other)
  Sender: FDA-Public Use
  Company Number: DE-ABBOTT-11P-062-0727804-00

PATIENT
  Sex: Female

DRUGS (9)
  1. CELEBREX [Concomitant]
     Indication: PRODUCT USED FOR UNKNOWN INDICATION
  2. KALINOR [Concomitant]
     Indication: PRODUCT USED FOR UNKNOWN INDICATION
     Route: 048
  3. TILIDIN [Concomitant]
     Indication: RHEUMATOID ARTHRITIS
  4. PROPAFENONE HCL [Concomitant]
     Indication: PRODUCT USED FOR UNKNOWN INDICATION
  5. EMBOLEX [Concomitant]
     Indication: PRODUCT USED FOR UNKNOWN INDICATION
  6. CORTISONE ACETATE [Concomitant]
     Indication: PRODUCT USED FOR UNKNOWN INDICATION
  7. LEVOTHYROXINE SODIUM [Concomitant]
     Indication: PRODUCT USED FOR UNKNOWN INDICATION
  8. HUMIRA [Suspect]
     Indication: RHEUMATOID ARTHRITIS
     Route: 058
     Dates: start: 20110506
  9. PANTOPRAZOLE [Concomitant]
     Indication: PRODUCT USED FOR UNKNOWN INDICATION

REACTIONS (6)
  - JOINT SWELLING [None]
  - HAEMATOMA [None]
  - BRADYCARDIA [None]
  - DIZZINESS [None]
  - ARRHYTHMIA [None]
  - PRURITUS GENERALISED [None]
